FAERS Safety Report 5550597-3 (Version None)
Quarter: 2007Q4

REPORT INFORMATION
  Report Type: 
  Country: None (occurrence: None)
  Receive Date: 20071212
  Receipt Date: 20070506
  Transmission Date: 20080405
  Serious: No
  Sender: FDA-Public Use
  Company Number: US-AMGEN-KDL214932

PATIENT
  Sex: Female

DRUGS (1)
  1. ENBREL [Suspect]
     Indication: RHEUMATOID ARTHRITIS
     Route: 058
     Dates: start: 20050505

REACTIONS (12)
  - ARTHRALGIA [None]
  - BACK PAIN [None]
  - BLOOD GLUCOSE INCREASED [None]
  - BONE PAIN [None]
  - JOINT SWELLING [None]
  - MUSCULOSKELETAL PAIN [None]
  - NECK PAIN [None]
  - PNEUMONIA [None]
  - PSORIASIS [None]
  - RESPIRATORY TRACT INFECTION VIRAL [None]
  - RHEUMATOID ARTHRITIS [None]
  - SKIN ULCER [None]
